FAERS Safety Report 5306628-9 (Version None)
Quarter: 2007Q2

REPORT INFORMATION
  Report Type: 
  Country: None (occurrence: None)
  Receive Date: 20070424
  Receipt Date: 20070413
  Transmission Date: 20071010
  Serious: Yes (Other)
  Sender: FDA-Public Use
  Company Number: RO-PFIZER INC-2007027884

PATIENT
  Sex: Female
  Weight: 82 kg

DRUGS (4)
  1. AMLODIPINE [Suspect]
     Indication: HYPERTENSION
     Route: 048
     Dates: start: 20070306, end: 20070308
  2. INDAPAMIDE [Concomitant]
     Dosage: TEXT:1 DF-FREQ:DAILY
     Route: 048
  3. ACENOCUMAROL [Concomitant]
     Route: 048
  4. GINKGO BILOBA [Concomitant]
     Route: 048

REACTIONS (5)
  - CIRCUMORAL OEDEMA [None]
  - FLUSHING [None]
  - OEDEMA PERIPHERAL [None]
  - PRURITUS [None]
  - SUFFOCATION FEELING [None]
